FAERS Safety Report 4549671-X (Version None)
Quarter: 2005Q1

REPORT INFORMATION
  Report Type: 
  Country: None (occurrence: None)
  Receive Date: 20050106
  Receipt Date: 20041103
  Transmission Date: 20050727
  Serious: Yes (Hospitalization)
  Sender: FDA-Public Use
  Company Number: F01200403447

PATIENT
  Age: 55 Year
  Sex: Male

DRUGS (1)
  1. (ALFUZOSIN) - TABLET - 10 MG [Suspect]
     Indication: SEXUAL DYSFUNCTION
     Dosage: 10 MG OD
     Route: 048
     Dates: start: 20040924, end: 20041110

REACTIONS (2)
  - HEPATITIS ACUTE [None]
  - HEPATITIS TOXIC [None]
